FAERS Safety Report 25028228 (Version 1)
Quarter: 2025Q1

REPORT INFORMATION
  Report Type: Spontaneous
  Country: US (occurrence: US)
  Receive Date: 20250301
  Receipt Date: 20250301
  Transmission Date: 20250409
  Serious: No
  Sender: SANOFI AVENTIS
  Company Number: US-SANOFI-02425061

PATIENT
  Age: 69 Year
  Sex: Female

DRUGS (2)
  1. TOUJEO [Suspect]
     Active Substance: INSULIN GLARGINE
     Indication: Type 2 diabetes mellitus
     Dosage: 16 U, QD
     Route: 058
  2. TOUJEO [Suspect]
     Active Substance: INSULIN GLARGINE
     Dosage: 15 UNITS IN THE MORNING AND 15 UNITS IN THE EVENING
     Route: 058
     Dates: start: 202412

REACTIONS (1)
  - Off label use [Unknown]
